FAERS Safety Report 9467616 (Version 2)
Quarter: 2016Q3

REPORT INFORMATION
  Report Type: Spontaneous
  Country: US (occurrence: US)
  Receive Date: 20130821
  Receipt Date: 20160721
  Transmission Date: 20161109
  Serious: Yes (Other)
  Sender: FDA-Public Use
  Company Number: US-RANBAXY-2013US-72301

PATIENT
  Age: 62 Year
  Sex: Female

DRUGS (6)
  1. ZOLPIDEM [Interacting]
     Active Substance: ZOLPIDEM\ZOLPIDEM TARTRATE
     Indication: ANXIETY
     Dosage: 2 OR 3 10 MG PILLS AND 1 OR MORE ADDITIONAL PILLS LATER THAT NIGHT OR IN THE EARLY MORNING
     Route: 065
  2. ZOLPIDEM [Interacting]
     Active Substance: ZOLPIDEM\ZOLPIDEM TARTRATE
     Indication: INSOMNIA
  3. ZOLPIDEM [Suspect]
     Active Substance: ZOLPIDEM\ZOLPIDEM TARTRATE
     Indication: ANXIETY
     Dosage: 10 MG NIGHTLY
     Route: 065
  4. ZOLPIDEM [Interacting]
     Active Substance: ZOLPIDEM\ZOLPIDEM TARTRATE
     Indication: INSOMNIA
  5. PAROXETINE. [Interacting]
     Active Substance: PAROXETINE
     Indication: ANXIETY
  6. PAROXETINE. [Interacting]
     Active Substance: PAROXETINE
     Indication: INSOMNIA
     Dosage: 10 MG, DAILY
     Route: 065

REACTIONS (15)
  - Delirium [Unknown]
  - Confusional state [Unknown]
  - Suicidal ideation [Unknown]
  - Disorientation [Unknown]
  - Emotional poverty [Unknown]
  - Homicide [Unknown]
  - Agitation [Unknown]
  - Intentional overdose [Unknown]
  - Cognitive disorder [Unknown]
  - Altered state of consciousness [Unknown]
  - Major depression [Unknown]
  - Delusion [Unknown]
  - Amnesia [Unknown]
  - Drug interaction [Unknown]
  - Speech disorder [Unknown]
